FAERS Safety Report 5878714-6 (Version None)
Quarter: 2008Q3

REPORT INFORMATION
  Report Type: 
  Country: None (occurrence: None)
  Receive Date: 20080912
  Receipt Date: 20080904
  Transmission Date: 20090109
  Serious: Yes (Hospitalization)
  Sender: FDA-Public Use
  Company Number: BR-JNJFOC-20080902031

PATIENT
  Sex: Male
  Weight: 23 kg

DRUGS (3)
  1. RISPERDAL [Suspect]
     Indication: PSYCHOMOTOR HYPERACTIVITY
     Route: 048
  2. RISPERDAL [Suspect]
     Indication: AUTISM
     Route: 048
  3. ATENSINA [Concomitant]
     Indication: PSYCHOMOTOR HYPERACTIVITY

REACTIONS (1)
  - ACCIDENTAL EXPOSURE [None]
